FAERS Safety Report 4731102-8 (Version None)
Quarter: 2005Q3

REPORT INFORMATION
  Report Type: 
  Country: None (occurrence: None)
  Receive Date: 20050728
  Receipt Date: 20050523
  Transmission Date: 20060218
  Serious: No
  Sender: FDA-Public Use
  Company Number: ZICO001220

PATIENT
  Sex: Female

DRUGS (1)
  1. PRIALT [Suspect]
     Indication: DRUG USE FOR UNKNOWN INDICATION
     Dosage: 0.15 MCG/HR INTRATHECAL
     Route: 037

REACTIONS (3)
  - APHASIA [None]
  - FATIGUE [None]
  - HALLUCINATION, AUDITORY [None]
